FAERS Safety Report 8569858-9 (Version None)
Quarter: 2012Q3

REPORT INFORMATION
  Report Type: 
  Country: None (occurrence: None)
  Receive Date: 20120803
  Receipt Date: 20120608
  Transmission Date: 20120928
  Serious: No
  Sender: FDA-Public Use
  Company Number: US-ABBOTT-12P-163-0944358-00

PATIENT
  Sex: Male
  Weight: 95.34 kg

DRUGS (4)
  1. CRESTOR [Concomitant]
     Indication: PRODUCT USED FOR UNKNOWN INDICATION
     Route: 048
  2. NIASPAN [Suspect]
     Indication: HIGH DENSITY LIPOPROTEIN DECREASED
     Dosage: 2 AT BED TIME
     Route: 048
  3. PAXIL [Concomitant]
     Indication: PRODUCT USED FOR UNKNOWN INDICATION
     Dosage: 25 MG DAILY
     Route: 048
  4. FISH OIL [Concomitant]
     Indication: PRODUCT USED FOR UNKNOWN INDICATION
     Dosage: 6000 DAILY
     Route: 048

REACTIONS (5)
  - MIDDLE INSOMNIA [None]
  - FLUSHING [None]
  - SKIN BURNING SENSATION [None]
  - ERYTHEMA [None]
  - PRURITUS [None]
